FAERS Safety Report 18249138 (Version 2)
Quarter: 2020Q4

REPORT INFORMATION
  Report Type: Spontaneous
  Country: DE (occurrence: DE)
  Receive Date: 20200909
  Receipt Date: 20201005
  Transmission Date: 20210113
  Serious: Yes (Other)
  Sender: FDA-Public Use
  Company Number: DE-ROCHE-2673694

PATIENT
  Age: 66 Year
  Sex: Female
  Weight: 90 kg

DRUGS (12)
  1. MTX [Concomitant]
     Active Substance: METHOTREXATE SODIUM
     Route: 042
     Dates: start: 200610
  2. RITUXIMAB. [Suspect]
     Active Substance: RITUXIMAB
     Indication: PRODUCT USED FOR UNKNOWN INDICATION
     Dosage: 2X1 G
     Route: 042
     Dates: start: 201312
  3. PREDNISOLON [Concomitant]
     Active Substance: PREDNISOLONE
  4. ADALIMUMAB [Concomitant]
     Active Substance: ADALIMUMAB
     Route: 058
  5. PREDNISOLON [Concomitant]
     Active Substance: PREDNISOLONE
     Dates: start: 201602
  6. TOCILIZUMAB. [Suspect]
     Active Substance: TOCILIZUMAB
     Indication: PRODUCT USED FOR UNKNOWN INDICATION
     Route: 042
     Dates: start: 201404
  7. PREDNISOLON [Concomitant]
     Active Substance: PREDNISOLONE
     Dates: start: 201506
  8. MTX [Concomitant]
     Active Substance: METHOTREXATE SODIUM
     Route: 058
  9. MTX [Concomitant]
     Active Substance: METHOTREXATE SODIUM
     Route: 058
  10. MTX [Concomitant]
     Active Substance: METHOTREXATE SODIUM
     Dates: start: 20200215
  11. ABATACEPT [Concomitant]
     Active Substance: ABATACEPT
     Route: 042
     Dates: start: 201410
  12. PREDNISOLON [Concomitant]
     Active Substance: PREDNISOLONE

REACTIONS (3)
  - Hypertensive crisis [Unknown]
  - Drug ineffective [Unknown]
  - Anaemia [Unknown]

NARRATIVE: CASE EVENT DATE: 201404
